FAERS Safety Report 13215374 (Version 1)
Quarter: 2017Q1

REPORT INFORMATION
  Report Type: Spontaneous
  Country: US (occurrence: US)
  Receive Date: 20170209
  Receipt Date: 20170209
  Transmission Date: 20170428
  Serious: No
  Sender: FDA-Public Use
  Company Number: US-ALLERGAN-1678289US

PATIENT
  Age: 44 Year
  Sex: Female

DRUGS (6)
  1. BOTOX COSMETIC [Suspect]
     Active Substance: ONABOTULINUMTOXINA
     Indication: SKIN WRINKLING
     Dosage: 5 UNITS, DEPRESSOR
     Route: 030
     Dates: start: 20161121, end: 20161121
  2. BOTOX COSMETIC [Suspect]
     Active Substance: ONABOTULINUMTOXINA
     Indication: SKIN WRINKLING
     Dosage: 20 UNITS, FOREHEAD
     Route: 030
     Dates: start: 20161121, end: 20161121
  3. BOTOX COSMETIC [Suspect]
     Active Substance: ONABOTULINUMTOXINA
     Indication: SKIN WRINKLING
     Dosage: 20 UNITS, PROCERUS
     Route: 030
     Dates: start: 20161121, end: 20161121
  4. JUVEDERM ULTRA [Concomitant]
     Active Substance: HYALURONIC ACID
     Indication: SKIN WRINKLING
  5. BOTOX COSMETIC [Suspect]
     Active Substance: ONABOTULINUMTOXINA
     Indication: SKIN WRINKLING
     Dosage: 20 UNITS, NASAL BROW
     Route: 030
     Dates: start: 20161121, end: 20161121
  6. BOTOX COSMETIC [Suspect]
     Active Substance: ONABOTULINUMTOXINA
     Indication: SKIN WRINKLING
     Dosage: 15 UNITS, CROWS FEET
     Route: 030
     Dates: start: 20161121, end: 20161121

REACTIONS (10)
  - Vision blurred [Unknown]
  - Ocular hyperaemia [Unknown]
  - Herpes zoster [Unknown]
  - Off label use [Unknown]
  - Eye swelling [Unknown]
  - Eye injury [Unknown]
  - Eye infection [Unknown]
  - Eyelid ptosis [Unknown]
  - Ocular hyperaemia [Unknown]
  - Eye pain [Unknown]

NARRATIVE: CASE EVENT DATE: 20161123
